FAERS Safety Report 4798112-6 (Version None)
Quarter: 2005Q4

REPORT INFORMATION
  Report Type: 
  Country: None (occurrence: None)
  Receive Date: 20051011
  Receipt Date: 20051011
  Transmission Date: 20060501
  Serious: No
  Sender: FDA-Public Use
  Company Number: None

PATIENT
  Sex: Female

DRUGS (1)
  1. LUNESTA [Suspect]
     Indication: SLEEP DISORDER
     Dosage: TK 1 TAB QHS   3 - 4 MONTHS

REACTIONS (1)
  - PHARMACEUTICAL PRODUCT COMPLAINT [None]
